FAERS Safety Report 17774262 (Version 1)
Quarter: 2020Q2

REPORT INFORMATION
  Report Type: Spontaneous
  Country: US (occurrence: US)
  Receive Date: 20200513
  Receipt Date: 20200513
  Transmission Date: 20200714
  Serious: No
  Sender: FDA-Public Use
  Company Number: US-APOTEX-2020AP010717

PATIENT
  Sex: Female

DRUGS (7)
  1. MYRBETRIQ [Suspect]
     Active Substance: MIRABEGRON
     Dosage: 50 MG, QD
     Route: 065
  2. PAROXETINE. [Suspect]
     Active Substance: PAROXETINE
     Indication: PRODUCT USED FOR UNKNOWN INDICATION
     Dosage: 10 MG, QD
     Route: 065
  3. PAROXETINE. [Suspect]
     Active Substance: PAROXETINE
     Dosage: 5 MG, QD
     Route: 065
  4. MYRBETRIQ [Suspect]
     Active Substance: MIRABEGRON
     Indication: HYPERTONIC BLADDER
     Dosage: 25 MG, QD (3 YEARS AGO)
     Route: 065
  5. MYRBETRIQ [Suspect]
     Active Substance: MIRABEGRON
     Dosage: 25 MG, Q.O.D.
     Route: 048
  6. FUROSEMIDE. [Concomitant]
     Active Substance: FUROSEMIDE
     Indication: PRODUCT USED FOR UNKNOWN INDICATION
     Dosage: UNK
     Route: 065
  7. PAROXETINE. [Suspect]
     Active Substance: PAROXETINE
     Dosage: 10 MG, QD
     Route: 048

REACTIONS (2)
  - Withdrawal syndrome [Unknown]
  - Headache [Unknown]
